FAERS Safety Report 18727665 (Version 2)
Quarter: 2021Q1

REPORT INFORMATION
  Report Type: Report from Study
  Country: GB (occurrence: GB)
  Receive Date: 20210111
  Receipt Date: 20210217
  Transmission Date: 20210419
  Serious: Yes (Other)
  Sender: FDA-Public Use
  Company Number: GB-TAKEDA-2020TUS053352

PATIENT
  Age: 62 Year
  Sex: Male

DRUGS (1)
  1. IXAZOMIB [Suspect]
     Active Substance: IXAZOMIB
     Indication: PLASMA CELL MYELOMA
     Dosage: 3 MILLIGRAM
     Route: 048
     Dates: start: 20180718

REACTIONS (26)
  - Hypoaesthesia [Unknown]
  - Fatigue [Unknown]
  - Arthritis [Unknown]
  - Depression [Unknown]
  - Paraesthesia [Unknown]
  - Pain in extremity [Unknown]
  - Cough [Unknown]
  - Decreased appetite [Unknown]
  - Nausea [Unknown]
  - Diplopia [Unknown]
  - Neuropathy peripheral [Unknown]
  - Mood altered [Unknown]
  - Asthenia [Unknown]
  - Oedema peripheral [Unknown]
  - Diarrhoea [Unknown]
  - Productive cough [Unknown]
  - Back pain [Unknown]
  - Vomiting [Unknown]
  - Diabetic foot [Unknown]
  - Anxiety [Unknown]
  - Gait disturbance [Unknown]
  - Night sweats [Unknown]
  - Dyspnoea [Unknown]
  - Headache [Unknown]
  - Sleep disorder [Unknown]
  - Influenza [Recovered/Resolved]
